FAERS Safety Report 10681835 (Version 1)
Quarter: 2014Q4

REPORT INFORMATION
  Report Type: Spontaneous
  Country: US (occurrence: US)
  Receive Date: 20141230
  Receipt Date: 20141230
  Transmission Date: 20150529
  Serious: No
  Sender: FDA-Public Use
  Company Number: US-EMD SERONO-8002015

PATIENT
  Age: 25 Year
  Sex: Female

DRUGS (1)
  1. REBIF [Suspect]
     Active Substance: INTERFERON BETA-1A
     Indication: MULTIPLE SCLEROSIS

REACTIONS (9)
  - Fatigue [Unknown]
  - Feeling abnormal [Unknown]
  - Multiple sclerosis relapse [Unknown]
  - Diarrhoea [Unknown]
  - Flatulence [Unknown]
  - Inappropriate schedule of drug administration [Unknown]
  - Injection site pain [Unknown]
  - Hair growth abnormal [Unknown]
  - Injection site atrophy [Unknown]

NARRATIVE: CASE EVENT DATE: 201407
